FAERS Safety Report 12717643 (Version 4)
Quarter: 2016Q4

REPORT INFORMATION
  Report Type: Report from Study
  Country: CO (occurrence: CO)
  Receive Date: 20160906
  Receipt Date: 20161009
  Transmission Date: 20170207
  Serious: Yes (Other)
  Sender: FDA-Public Use
  Company Number: PHHY2016CO122626

PATIENT
  Age: 39 Year
  Sex: Female
  Weight: 48 kg

DRUGS (3)
  1. LANREOTIDE [Concomitant]
     Active Substance: LANREOTIDE
     Indication: PRODUCT USED FOR UNKNOWN INDICATION
     Dosage: UNK UNK, QMO (MONTHLY EVERY 28 DAYS)
     Route: 030
  2. AFINITOR [Suspect]
     Active Substance: EVEROLIMUS
     Indication: NEUROENDOCRINE CARCINOMA METASTATIC
     Dosage: 10 MG, QD
     Route: 048
     Dates: start: 20160315
  3. AFINITOR [Suspect]
     Active Substance: EVEROLIMUS
     Dosage: 10 MG, QD
     Route: 048
     Dates: start: 20160902

REACTIONS (6)
  - Tumour pain [Recovering/Resolving]
  - Back pain [Recovering/Resolving]
  - Depressed mood [Unknown]
  - Decreased appetite [Unknown]
  - Malignant neoplasm progression [Unknown]
  - Somnolence [Unknown]

NARRATIVE: CASE EVENT DATE: 20160823
